FAERS Safety Report 18332138 (Version 1)
Quarter: 2020Q3

REPORT INFORMATION
  Report Type: Report from Study
  Country: US (occurrence: US)
  Receive Date: 20200930
  Receipt Date: 20200930
  Transmission Date: 20201103
  Serious: No
  Sender: FDA-Public Use
  Company Number: US-KARYOPHARM-2020KPT001115

PATIENT
  Age: 55 Year
  Sex: Male

DRUGS (2)
  1. DECADRON [Concomitant]
     Active Substance: DEXAMETHASONE
     Indication: PRIMARY AMYLOIDOSIS
     Dosage: 12 MG, WEEKLY
     Route: 048
     Dates: start: 20200716
  2. SELINEXOR [Suspect]
     Active Substance: SELINEXOR
     Indication: PRIMARY AMYLOIDOSIS
     Dosage: 60 MG, WEEKLY
     Route: 048
     Dates: start: 20200716

REACTIONS (2)
  - Diarrhoea [Unknown]
  - Thrombocytopenia [Unknown]

NARRATIVE: CASE EVENT DATE: 2020
